FAERS Safety Report 9648986 (Version 1)
Quarter: 2013Q4

REPORT INFORMATION
  Report Type: Report from Study
  Country: KR (occurrence: KR)
  Receive Date: 20131028
  Receipt Date: 20131028
  Transmission Date: 20140711
  Serious: Yes (Death)
  Sender: FDA-Public Use
  Company Number: KR-SA-2013SA106609

PATIENT
  Age: 73 Year
  Sex: Female
  Weight: 75 kg

DRUGS (2)
  1. LANTUS [Suspect]
     Indication: DIABETES MELLITUS
     Dosage: DOSE:34 UNIT(S)
     Route: 058
     Dates: end: 2013
  2. HUMALOG [Suspect]
     Indication: DIABETES MELLITUS
     Dosage: DOSE:24 UNIT(S)
     Route: 058
     Dates: end: 2013

REACTIONS (1)
  - Myelitis transverse [Fatal]
